FAERS Safety Report 20376557 (Version 5)
Quarter: 2022Q2

REPORT INFORMATION
  Report Type: Report from Study
  Country: IT (occurrence: IT)
  Receive Date: 20220125
  Receipt Date: 20220621
  Transmission Date: 20220720
  Serious: Yes (Hospitalization)
  Sender: FDA-Public Use
  Company Number: IT-ABBVIE-21P-083-4202024-00

PATIENT
  Age: 76 Year
  Sex: Female
  Weight: 52 kg

DRUGS (40)
  1. VENETOCLAX [Suspect]
     Active Substance: VENETOCLAX
     Indication: Diffuse large B-cell lymphoma
     Dosage: DAYS 1-5. LAST DOSE PRIOR TO AE:29 NOV 2021
     Route: 048
     Dates: start: 20211107
  2. POLATUZUMAB VEDOTIN [Suspect]
     Active Substance: POLATUZUMAB VEDOTIN
     Indication: Diffuse large B-cell lymphoma
     Dosage: LAST DOSE PRIOR TO AE: 25 NOV 2021
     Route: 042
     Dates: start: 20211104
  3. RITUXIMAB [Suspect]
     Active Substance: RITUXIMAB
     Indication: Diffuse large B-cell lymphoma
     Dosage: LAST DOSE PRIOR TO AE: 375MG ON 25 NOV 2021
     Route: 041
     Dates: start: 20211104
  4. PREDNISONE [Suspect]
     Active Substance: PREDNISONE
     Indication: Diffuse large B-cell lymphoma
     Dosage: DAYS 1-5 LAST DOSE PRIOR TO AE: 29 NOV 2021
     Route: 048
     Dates: start: 20211105
  5. CYCLOPHOSPHAMIDE [Suspect]
     Active Substance: CYCLOPHOSPHAMIDE
     Indication: Diffuse large B-cell lymphoma
     Dosage: LAST DOSE PRIOR TO AE 25 NOV 2021
     Route: 042
     Dates: start: 20211104
  6. DOXORUBICIN [Suspect]
     Active Substance: DOXORUBICIN
     Indication: Diffuse large B-cell lymphoma
     Dosage: LAST DOSE PRIOR TO AE: 75MG ON 25 NOV 2021
     Route: 042
     Dates: start: 20211104
  7. METHYLPREDNISOLONE [Suspect]
     Active Substance: METHYLPREDNISOLONE
     Indication: Diffuse large B-cell lymphoma
     Dosage: DAYS 1-5. LAST DOSE PRIOR TO SAE: 25 NOV 2021
     Route: 042
     Dates: start: 20211125
  8. PREDNISOLONE [Suspect]
     Active Substance: PREDNISOLONE
     Indication: Diffuse large B-cell lymphoma
     Route: 065
     Dates: start: 20211125
  9. KCL [Concomitant]
     Active Substance: POTASSIUM CHLORIDE
     Indication: Hypokalaemia
     Route: 042
     Dates: start: 20211207, end: 20211207
  10. OMEPRAZOLE [Concomitant]
     Active Substance: OMEPRAZOLE
     Indication: Prophylaxis
     Route: 048
     Dates: start: 20211201, end: 20211201
  11. RAMIPRIL [Concomitant]
     Active Substance: RAMIPRIL
     Indication: Hypertension
     Route: 048
  12. BISOPROLOL [Concomitant]
     Active Substance: BISOPROLOL
     Indication: Hypertension
     Route: 048
  13. XARELTO [Concomitant]
     Active Substance: RIVAROXABAN
     Indication: Hypertension
     Route: 048
  14. PANTOPRAZOLE [Concomitant]
     Active Substance: PANTOPRAZOLE
     Indication: Prophylaxis
     Route: 048
     Dates: start: 20211108, end: 20211123
  15. PANTOPRAZOLE [Concomitant]
     Active Substance: PANTOPRAZOLE
     Route: 048
     Dates: start: 20211202
  16. ENOXAPARIN SODIUM [Concomitant]
     Active Substance: ENOXAPARIN SODIUM
     Indication: Prophylaxis
     Route: 058
     Dates: start: 20211130
  17. MYCOSTATIN [Concomitant]
     Active Substance: NYSTATIN
     Indication: Prophylaxis
     Route: 048
     Dates: start: 20211202, end: 20211208
  18. FILGRASTIM [Concomitant]
     Active Substance: FILGRASTIM
     Indication: Prophylaxis
     Dosage: 30 UNIT NOT REPORTED
     Route: 058
     Dates: start: 20211107, end: 20211111
  19. FILGRASTIM [Concomitant]
     Active Substance: FILGRASTIM
     Dosage: 30 UNIT NOT REPORTED
     Route: 058
     Dates: start: 20211128, end: 20211204
  20. FILGRASTIM [Concomitant]
     Active Substance: FILGRASTIM
     Dosage: 30 UNIT NOT REPORTED
     Route: 058
     Dates: start: 20211217, end: 20211223
  21. CEFTIBUTEN [Concomitant]
     Active Substance: CEFTIBUTEN
     Indication: Prophylaxis
     Route: 048
     Dates: start: 20211108, end: 20211112
  22. LOPERAMIDE [Concomitant]
     Active Substance: LOPERAMIDE
     Indication: Diarrhoea
     Route: 048
     Dates: start: 20211127, end: 20211127
  23. LOPERAMIDE [Concomitant]
     Active Substance: LOPERAMIDE
     Route: 048
     Dates: start: 20211216, end: 20211219
  24. OMEPRAZOLE SODIUM [Concomitant]
     Active Substance: OMEPRAZOLE SODIUM
     Indication: Prophylaxis
     Route: 042
     Dates: start: 20211125, end: 20211130
  25. SODIUM CHLORIDE [Concomitant]
     Active Substance: SODIUM CHLORIDE
     Indication: Hyponatraemia
     Route: 042
     Dates: start: 20211207, end: 20211207
  26. CAL2 [Concomitant]
     Indication: Hypocalcaemia
     Route: 042
     Dates: start: 20211207, end: 20211207
  27. CAL2 [Concomitant]
     Route: 042
     Dates: start: 20211212, end: 20211212
  28. CALCIUM GLUCONATE [Concomitant]
     Active Substance: CALCIUM GLUCONATE
     Indication: Hypocalcaemia
     Route: 042
     Dates: start: 20211214, end: 20211220
  29. MAGNESIUM SULFATE [Concomitant]
     Active Substance: MAGNESIUM SULFATE
     Indication: Hypocalcaemia
     Route: 042
     Dates: start: 20211209, end: 20211209
  30. MAGNESIUM SULFATE [Concomitant]
     Active Substance: MAGNESIUM SULFATE
     Route: 042
     Dates: start: 20211212, end: 20211212
  31. MAGNESIUM SULFATE [Concomitant]
     Active Substance: MAGNESIUM SULFATE
     Route: 042
     Dates: start: 20211214, end: 20211216
  32. ALBUMIN HUMAN [Concomitant]
     Active Substance: ALBUMIN HUMAN
     Indication: Hypoalbuminaemia
     Route: 042
     Dates: start: 20211209, end: 20211219
  33. PIPERACILLIN SODIUM\TAZOBACTAM SODIUM [Concomitant]
     Active Substance: PIPERACILLIN SODIUM\TAZOBACTAM SODIUM
     Indication: Product used for unknown indication
     Route: 042
     Dates: start: 20211209, end: 20211210
  34. MEROPENEM [Concomitant]
     Active Substance: MEROPENEM
     Indication: Product used for unknown indication
     Route: 042
     Dates: start: 20211211, end: 20211215
  35. LASIX [Concomitant]
     Active Substance: FUROSEMIDE
     Indication: Oedema
     Route: 048
     Dates: start: 20211213, end: 20211215
  36. LUVION [Concomitant]
     Indication: Oedema
     Route: 042
     Dates: start: 20211210, end: 20211219
  37. RINGER LATTATO [Concomitant]
     Indication: Product used for unknown indication
     Route: 042
     Dates: start: 20211207, end: 20211207
  38. RINGER LATTATO [Concomitant]
     Route: 042
     Dates: start: 20211209, end: 20211210
  39. DIPHENHYDRAMINE [Concomitant]
     Active Substance: DIPHENHYDRAMINE
     Indication: Premedication
     Route: 048
     Dates: start: 20211125, end: 20211125
  40. DIPHENHYDRAMINE [Concomitant]
     Active Substance: DIPHENHYDRAMINE
     Route: 048
     Dates: start: 20211216, end: 20211216

REACTIONS (1)
  - Hypophosphataemia [Recovered/Resolved]

NARRATIVE: CASE EVENT DATE: 20211209
